FAERS Safety Report 7221023-3 (Version None)
Quarter: 2011Q1

REPORT INFORMATION
  Report Type: 
  Country: None (occurrence: None)
  Receive Date: 20110112
  Receipt Date: 20110106
  Transmission Date: 20110831
  Serious: Yes (Death, Life-Threatening, Hospitalization, Disabling, Other)
  Sender: FDA-Public Use
  Company Number: US-CELGENEUS-163-21880-10102661

PATIENT
  Sex: Male

DRUGS (3)
  1. RED BLOOD CELLS [Concomitant]
     Indication: SURGERY
     Route: 051
     Dates: start: 20100823, end: 20100823
  2. PLATELETS [Concomitant]
     Indication: SURGERY
     Route: 051
     Dates: start: 20100823, end: 20100823
  3. REVLIMID [Suspect]
     Route: 048
     Dates: start: 20090922, end: 20100330

REACTIONS (6)
  - MYELODYSPLASTIC SYNDROME TRANSFORMATION [None]
  - RENAL FAILURE [None]
  - ACUTE MYELOID LEUKAEMIA [None]
  - CARDIAC FAILURE [None]
  - RESPIRATORY FAILURE [None]
  - ABSCESS LIMB [None]
